FAERS Safety Report 22210885 (Version 3)
Quarter: 2023Q2

REPORT INFORMATION
  Report Type: Report from Study
  Country: US (occurrence: None)
  Receive Date: 20230414
  Receipt Date: 20230425
  Transmission Date: 20230721
  Serious: Yes (Death, Hospitalization, Disabling)
  Sender: FDA-Public Use
  Company Number: US-ROCHE-3321864

PATIENT
  Age: 78 Year
  Sex: Male
  Weight: 79.4 kg

DRUGS (2)
  1. ATEZOLIZUMAB [Suspect]
     Active Substance: ATEZOLIZUMAB
     Indication: Hormone-refractory prostate cancer
     Dosage: LAST DOSAGE OF ATEZOLIZUMAB: 05/JAN/2023
     Route: 065
     Dates: start: 20220714
  2. CABOZANTINIB [Suspect]
     Active Substance: CABOZANTINIB
     Indication: Hormone-refractory prostate cancer
     Dosage: LAST DOSE OF CABOZANTINIB: 25/JAN/2023
     Route: 065
     Dates: start: 20220714

REACTIONS (3)
  - Sepsis [Fatal]
  - Hormone-refractory prostate cancer [Fatal]
  - Femur fracture [Recovered/Resolved]

NARRATIVE: CASE EVENT DATE: 20230311
